FAERS Safety Report 20119485 (Version 5)
Quarter: 2022Q3

REPORT INFORMATION
  Report Type: Report from Study
  Country: DE (occurrence: DE)
  Receive Date: 20211126
  Receipt Date: 20220701
  Transmission Date: 20221027
  Serious: Yes (Hospitalization, Other)
  Sender: FDA-Public Use
  Company Number: DE-NOVARTISPH-NVSC2021DE247222

PATIENT
  Age: 71 Year
  Sex: Male
  Weight: 81 kg

DRUGS (7)
  1. COSENTYX [Suspect]
     Active Substance: SECUKINUMAB
     Indication: Psoriasis
     Dosage: 300 MG (2X150MG)
     Route: 058
     Dates: start: 20160126, end: 20191103
  2. COSENTYX [Suspect]
     Active Substance: SECUKINUMAB
     Dosage: 300 MG, QMO
     Route: 058
  3. ASPIRIN [Concomitant]
     Active Substance: ASPIRIN
     Indication: Product used for unknown indication
     Dosage: UNK
     Route: 048
  4. OLMESARTAN [Concomitant]
     Active Substance: OLMESARTAN
     Indication: Product used for unknown indication
     Dosage: 1 DOSAGE FORM, QD
     Route: 048
  5. IVABRADINE [Concomitant]
     Active Substance: IVABRADINE
     Indication: Product used for unknown indication
     Dosage: 0.5 DOSAGE FORM, BID
     Route: 048
  6. ALLOPURINOL [Concomitant]
     Active Substance: ALLOPURINOL
     Indication: Product used for unknown indication
     Dosage: UNK
     Route: 048
  7. LERCANIDIPINE [Concomitant]
     Active Substance: LERCANIDIPINE
     Indication: Product used for unknown indication
     Dosage: UNK, BID
     Route: 048

REACTIONS (15)
  - Eczema [Recovered/Resolved]
  - Neurodermatitis [Recovered/Resolved]
  - Coronary artery disease [Recovered/Resolved]
  - Renal failure [Recovered/Resolved]
  - Hyperuricaemia [Unknown]
  - Hypertension [Unknown]
  - Dermatitis [Recovered/Resolved]
  - Pruritus [Recovered/Resolved]
  - Coronary artery disease [Not Recovered/Not Resolved]
  - Drug eruption [Recovered/Resolved]
  - Atopy [Recovered/Resolved]
  - Exercise tolerance decreased [Recovered/Resolved]
  - Prostatic specific antigen increased [Recovered/Resolved]
  - Sleep disorder [Recovered/Resolved]
  - Eczema [Unknown]

NARRATIVE: CASE EVENT DATE: 20191004
